FAERS Safety Report 25534217 (Version 1)
Quarter: 2025Q3

REPORT INFORMATION
  Report Type: Spontaneous
  Country: US (occurrence: US)
  Receive Date: 20250709
  Receipt Date: 20250709
  Transmission Date: 20251021
  Serious: Yes (Other)
  Sender: AMGEN
  Company Number: US-AMGEN-USASP2025130216

PATIENT
  Age: 18 Year
  Weight: 38.6 kg

DRUGS (4)
  1. RITUXIMAB [Suspect]
     Active Substance: RITUXIMAB
     Indication: Transplant rejection
     Route: 065
  2. Immunoglobulin [Concomitant]
     Route: 040
  3. BORTEZOMIB [Concomitant]
     Active Substance: BORTEZOMIB
  4. TOLODODEKIN ALFA [Concomitant]
     Active Substance: TOLODODEKIN ALFA

REACTIONS (5)
  - Heart transplant rejection [Unknown]
  - Viral upper respiratory tract infection [Unknown]
  - Nausea [Unknown]
  - Headache [Recovering/Resolving]
  - Off label use [Unknown]
